FAERS Safety Report 13532192 (Version 1)
Quarter: 2017Q2

REPORT INFORMATION
  Report Type: Spontaneous
  Country: US (occurrence: US)
  Receive Date: 20170510
  Receipt Date: 20170510
  Transmission Date: 20170830
  Serious: Yes (Other)
  Sender: FDA-Public Use
  Company Number: US-SA-2017SA083326

PATIENT
  Age: 30 Year
  Sex: Male

DRUGS (1)
  1. XYZAL ALLERGY 24HR [Suspect]
     Active Substance: LEVOCETIRIZINE DIHYDROCHLORIDE
     Indication: SEASONAL ALLERGY
     Route: 065
     Dates: start: 20170501, end: 20170502

REACTIONS (5)
  - Haemorrhage [Unknown]
  - Feeling drunk [Unknown]
  - Somnolence [Unknown]
  - Drug ineffective [Unknown]
  - Sunburn [Unknown]

NARRATIVE: CASE EVENT DATE: 20170502
